FAERS Safety Report 17429070 (Version 1)
Quarter: 2020Q1

REPORT INFORMATION
  Report Type: Spontaneous
  Country: PT (occurrence: PT)
  Receive Date: 20200218
  Receipt Date: 20200218
  Transmission Date: 20200409
  Serious: Yes (Hospitalization, Other)
  Sender: FDA-Public Use
  Company Number: PT-PFIZER INC-2020068448

PATIENT
  Age: 37 Year
  Sex: Male

DRUGS (1)
  1. GEMTUZUMAB OZOGAMICIN [Suspect]
     Active Substance: GEMTUZUMAB OZOGAMICIN
     Indication: ACUTE MYELOID LEUKAEMIA
     Dosage: ONE INTAKE ONLY

REACTIONS (3)
  - Hepatic ischaemia [Unknown]
  - Product use in unapproved indication [Unknown]
  - Off label use [Unknown]
